FAERS Safety Report 9028664 (Version 4)
Quarter: 2013Q1

REPORT INFORMATION
  Report Type: Spontaneous
  Country: GB (occurrence: GB)
  Receive Date: 20130124
  Receipt Date: 20130213
  Transmission Date: 20140127
  Serious: Yes (Other)
  Sender: FDA-Public Use
  Company Number: PHFR2012GB006656

PATIENT
  Age: 42 Year
  Sex: Female

DRUGS (4)
  1. CLOZARIL [Suspect]
     Indication: SCHIZOPHRENIA
     Dosage: UKN
     Route: 048
     Dates: start: 20020924
  2. CLOZARIL [Suspect]
     Dosage: 500 MG
     Route: 048
     Dates: start: 2003, end: 20121228
  3. HYOSCINE HYDROBROMIDE [Concomitant]
     Indication: SALIVARY HYPERSECRETION
     Dosage: 300 MG
     Route: 048
     Dates: start: 2011
  4. OXYBUTYNIN HYDROCHLORIDE [Concomitant]
     Indication: URINARY INCONTINENCE
     Dosage: 10 MG
     Route: 048
     Dates: start: 2011

REACTIONS (5)
  - Viral infection [Recovered/Resolved]
  - Influenza [Recovered/Resolved]
  - White blood cell count decreased [Recovering/Resolving]
  - Neutropenia [Recovered/Resolved]
  - Neutrophil count decreased [Recovered/Resolved]
